FAERS Safety Report 14253139 (Version 1)
Quarter: 2017Q4

REPORT INFORMATION
  Report Type: Report from Study
  Country: None (occurrence: DE)
  Receive Date: 20171206
  Receipt Date: 20171206
  Transmission Date: 20180321
  Serious: Yes (Hospitalization, Other)
  Sender: FDA-Public Use
  Company Number: DE-ABBVIE-17K-062-2183685-00

PATIENT
  Age: 56 Year
  Sex: Male

DRUGS (1)
  1. HUMIRA [Suspect]
     Active Substance: ADALIMUMAB
     Indication: COLITIS ULCERATIVE
     Route: 058
     Dates: start: 20160129, end: 201708

REACTIONS (6)
  - Intestinal fistula [Recovering/Resolving]
  - Urinary tract infection [Recovered/Resolved]
  - Intestinal stenosis [Recovering/Resolving]
  - Benign gastrointestinal neoplasm [Recovering/Resolving]
  - Tumour inflammation [Unknown]
  - Crohn^s disease [Unknown]

NARRATIVE: CASE EVENT DATE: 201708
